FAERS Safety Report 6032554-6 (Version None)
Quarter: 2009Q1

REPORT INFORMATION
  Report Type: 
  Country: None (occurrence: None)
  Receive Date: 20090107
  Receipt Date: 20090107
  Transmission Date: 20090719
  Serious: No
  Sender: FDA-Public Use
  Company Number: C-08-0073-W

PATIENT
  Age: 44 Year
  Sex: Male
  Weight: 91.6266 kg

DRUGS (3)
  1. CEFTRIAXONE [Suspect]
     Indication: BRONCHITIS
     Dosage: 1GM/INJECTED (GLUTEAL)
     Dates: start: 20081105
  2. CEFTRIAXONE [Suspect]
     Indication: SINUSITIS
     Dosage: 1GM/INJECTED (GLUTEAL)
     Dates: start: 20081105
  3. ZITHROMAX [Concomitant]

REACTIONS (1)
  - INJECTION SITE PAIN [None]
